FAERS Safety Report 15328574 (Version 2)
Quarter: 2018Q4

REPORT INFORMATION
  Report Type: Spontaneous
  Country: DE (occurrence: DE)
  Receive Date: 20180829
  Receipt Date: 20181231
  Transmission Date: 20190204
  Serious: Yes (Hospitalization)
  Sender: FDA-Public Use
  Company Number: DE-MERCK KGAA-2054396

PATIENT
  Age: 52 Year
  Sex: Female
  Weight: 70 kg

DRUGS (48)
  1. VALSARTAN 1A PHARMA [Suspect]
     Active Substance: VALSARTAN
     Dates: start: 20140124, end: 20180723
  2. L THYROXIN HENNING [Concomitant]
     Active Substance: LEVOTHYROXINE SODIUM
  3. ATORVASTATIN ABZ [Concomitant]
     Active Substance: ATORVASTATIN SODIUM
  4. VIGANTOLETTEN [Concomitant]
     Active Substance: CHOLECALCIFEROL
     Dates: start: 20171129
  5. EFIENT [Concomitant]
     Active Substance: PRASUGREL HYDROCHLORIDE
     Dates: start: 20141014
  6. AMOXI [Concomitant]
     Active Substance: AMOXICILLIN
     Dates: start: 20180323
  7. DOMPERIDONE [Concomitant]
     Active Substance: DOMPERIDONE
     Dates: start: 20180116
  8. MCP-RATIOPHARM [Concomitant]
     Active Substance: METOCLOPRAMIDE HYDROCHLORIDE
     Dates: start: 20160506
  9. DREISAFOL [Concomitant]
     Dates: start: 20170306
  10. MCP AL [Concomitant]
     Dates: start: 20160615
  11. L-THYROX HEXAL [Concomitant]
     Active Substance: LEVOTHYROXINE SODIUM
  12. TORASEMID-1A PHARMA [Concomitant]
     Active Substance: TORSEMIDE
  13. IBU [Concomitant]
     Active Substance: IBUPROFEN
  14. EISENTABLETTEN [Concomitant]
     Dates: start: 20180726
  15. PREDNISOLON [Concomitant]
     Active Substance: PREDNISOLONE
  16. BISOHEXAL [Concomitant]
     Active Substance: BISOPROLOL FUMARATE
  17. CIPROBETA [Concomitant]
     Active Substance: CIPROFLOXACIN HYDROCHLORIDE
     Dates: start: 20140124
  18. IBUPROFEN. [Concomitant]
     Active Substance: IBUPROFEN
     Dates: start: 20150908
  19. CONCOR COR [Suspect]
     Active Substance: BISOPROLOL FUMARATE
  20. SIMVAHEXAL [Suspect]
     Active Substance: SIMVASTATIN
  21. VALSARTAN STADA [Suspect]
     Active Substance: VALSARTAN
     Dates: start: 20140614
  22. BETAHISTINE [Concomitant]
     Active Substance: BETAHISTINE
  23. GLIMEPIRIDE WINTHROP [Concomitant]
  24. IBUFLAM [Concomitant]
     Active Substance: IBUPROFEN
     Dates: start: 20180507
  25. METFORMIN AXCOUNT [Concomitant]
     Active Substance: METFORMIN HYDROCHLORIDE
  26. CLOPIDOGREL HEUMANN [Concomitant]
     Active Substance: CLOPIDOGREL BISULFATE
  27. NOVAMINSULFON LICHTENSTEIN [Concomitant]
     Active Substance: METAMIZOLE SODIUM
     Dates: start: 20150302
  28. DOLO POSTERINE [Concomitant]
     Dates: start: 20140210
  29. ATORVASTATIN STADA [Concomitant]
     Active Substance: ATORVASTATIN
  30. CAPVAL [Concomitant]
     Dates: start: 20180319
  31. CEFUROXIME. [Concomitant]
     Active Substance: CEFUROXIME
  32. CIPROFLOXACIN ABZ [Concomitant]
     Dates: start: 20140714
  33. MOXIFLOXACIN 1A PHARMA [Concomitant]
     Dates: start: 20160520
  34. EUTHYROX [Suspect]
     Active Substance: LEVOTHYROXINE SODIUM
     Indication: PRODUCT USED FOR UNKNOWN INDICATION
  35. DIOVAN [Suspect]
     Active Substance: VALSARTAN
  36. VALSARTAN/HYDROCHLOORTHIAZIDE(CO-DIOVAN) [Suspect]
     Active Substance: HYDROCHLOROTHIAZIDE\VALSARTAN
     Dates: start: 201305, end: 201807
  37. MONTELUKAST 1 A PHARMA [Concomitant]
     Dates: start: 20170216
  38. CALCIMAGON D3(LEKOVIT CA) [Concomitant]
  39. HCT DEXCEL [Concomitant]
     Active Substance: HYDROCHLOROTHIAZIDE
     Dates: start: 20180723
  40. METEX [Concomitant]
  41. ATORVASTATIN 1 A PHARMA [Concomitant]
     Dates: start: 20131223
  42. CLOPIDOGREL [Concomitant]
     Active Substance: CLOPIDOGREL BISULFATE
     Dates: start: 20150211
  43. TAMIFLU [Concomitant]
     Active Substance: OSELTAMIVIR PHOSPHATE
     Dates: start: 20180319
  44. PANTOPRAZOLE SODIUM. [Concomitant]
     Active Substance: PANTOPRAZOLE SODIUM
  45. NITROLINGUAL [Concomitant]
     Active Substance: NITROGLYCERIN
  46. PREDNISOLON AL [Concomitant]
  47. VALSACOR [Concomitant]
     Active Substance: VALSARTAN
  48. FERRO SANOL DUODEN [Concomitant]
     Dates: start: 20170704

REACTIONS (6)
  - Angina pectoris [Unknown]
  - Pain [Recovering/Resolving]
  - Stenosis [Unknown]
  - Inflammation [Unknown]
  - Ventricular extrasystoles [Unknown]
  - Nausea [Recovering/Resolving]

NARRATIVE: CASE EVENT DATE: 20130516
